FAERS Safety Report 7636791-6 (Version None)
Quarter: 2011Q3

REPORT INFORMATION
  Report Type: 
  Country: None (occurrence: None)
  Receive Date: 20110726
  Receipt Date: 20110721
  Transmission Date: 20111222
  Serious: Yes (Death)
  Sender: FDA-Public Use
  Company Number: US-SANOFI-AVENTIS-2011SA046855

PATIENT
  Age: 75 Year
  Sex: Male

DRUGS (1)
  1. PLAVIX [Suspect]
     Route: 065
     Dates: start: 20080501

REACTIONS (1)
  - COLON CANCER [None]
